FAERS Safety Report 5766188-5 (Version None)
Quarter: 2008Q2

REPORT INFORMATION
  Report Type: 
  Country: None (occurrence: None)
  Receive Date: 20080606
  Receipt Date: 20080530
  Transmission Date: 20081010
  Serious: Yes (Other)
  Sender: FDA-Public Use
  Company Number: 2008SP010537

PATIENT
  Age: 16 Year
  Sex: Female

DRUGS (3)
  1. CLARITIN [Suspect]
     Indication: EYE PRURITUS
  2. CLARITIN [Suspect]
     Indication: LACRIMATION INCREASED
  3. CLARITIN [Suspect]
     Indication: NASAL CONGESTION

REACTIONS (2)
  - DRUG INEFFECTIVE [None]
  - HAEMATEMESIS [None]
